FAERS Safety Report 24224273 (Version 1)
Quarter: 2024Q3

REPORT INFORMATION
  Report Type: Spontaneous
  Country: US (occurrence: None)
  Receive Date: 20240818
  Receipt Date: 20240818
  Transmission Date: 20241017
  Serious: Yes (Other)
  Sender: Public
  Company Number: None

PATIENT
  Age: 80 Year
  Sex: Female
  Weight: 46.35 kg

DRUGS (4)
  1. NITROFURANTOIN [Suspect]
     Active Substance: NITROFURANTOIN
     Indication: Urinary tract infection
     Dosage: 10 CAPSULES TWICE A DAY ORAL
     Route: 048
     Dates: start: 20240816, end: 20240816
  2. MAGNESIUM [Concomitant]
  3. Vitamn D3 [Concomitant]
  4. OMEGA 3 [Concomitant]
     Active Substance: CAPSAICIN

REACTIONS (6)
  - Dizziness [None]
  - Gait disturbance [None]
  - Confusional state [None]
  - Back pain [None]
  - Gastrointestinal disorder [None]
  - Pain [None]

NARRATIVE: CASE EVENT DATE: 20240816
